FAERS Safety Report 7486365-5 (Version None)
Quarter: 2011Q2

REPORT INFORMATION
  Report Type: 
  Country: None (occurrence: None)
  Receive Date: 20110517
  Receipt Date: 20110509
  Transmission Date: 20111010
  Serious: Yes (Hospitalization)
  Sender: FDA-Public Use
  Company Number: PHHY2011US39020

PATIENT
  Age: 45 Year
  Sex: Female

DRUGS (15)
  1. LEVETIRACETAM [Suspect]
     Indication: PARTIAL SEIZURES
     Dosage: 500 MG, BID
  2. PREDNISONE TAB [Concomitant]
     Dosage: 60 MG, UNK
  3. FEXOFENADINE [Concomitant]
     Dosage: 60 MG, BID
  4. ATENOLOL [Concomitant]
     Dosage: 25 MG, UNK
  5. ALENDRONATE SODIUM [Concomitant]
     Dosage: 70 MG, QW
  6. ACETAMINOPHEN [Concomitant]
     Indication: PAIN
     Dosage: 650 MG, UNK
  7. PREDNISONE TAB [Concomitant]
     Dosage: 60 MG, UNK
  8. LEVETIRACETAM [Suspect]
     Dosage: 500 MG, BID
  9. METHIMAZOLE [Concomitant]
     Indication: HYPERTHYROIDISM
     Dosage: 10 MG, BID
  10. OXYGEN [Concomitant]
     Dosage: UNK 2L/MIN
  11. PANTOPRAZOLE [Concomitant]
     Dosage: 40 MG, UNK
  12. PREDNISONE TAB [Concomitant]
     Dosage: 10 MG, UNK
  13. PROPOXYPHENE HYDROCHLORIDE [Concomitant]
     Dosage: 100 MG, UNK
  14. INSULIN [Concomitant]
     Dosage: UNK UKN, UNK
  15. IPRATROPIUM BROMIDE [Concomitant]
     Dosage: UNK UKN, UNK

REACTIONS (13)
  - SKIN EXFOLIATION [None]
  - RASH PUSTULAR [None]
  - PRURITUS [None]
  - RASH MORBILLIFORM [None]
  - ACUTE GENERALISED EXANTHEMATOUS PUSTULOSIS [None]
  - RESPIRATORY FAILURE [None]
  - BLOOD PRESSURE DECREASED [None]
  - SEPTIC SHOCK [None]
  - BODY TEMPERATURE DECREASED [None]
  - ERYTHEMA [None]
  - OEDEMA [None]
  - RASH [None]
  - DERMATITIS [None]
